FAERS Safety Report 7280937-9 (Version None)
Quarter: 2011Q1

REPORT INFORMATION
  Report Type: 
  Country: None (occurrence: None)
  Receive Date: 20110203
  Receipt Date: 20110203
  Transmission Date: 20110831
  Serious: Yes (Hospitalization)
  Sender: FDA-Public Use
  Company Number: None

PATIENT
  Sex: Male
  Weight: 16.1 kg

DRUGS (11)
  1. INTERLEUKIN-2, RECOMBINANT (CHIRON; ALDESLEUKIN; PROLEUKIN) [Suspect]
     Dosage: 20.4 IU
     Dates: start: 20100924
  2. ALBUMIN (HUMAN) [Concomitant]
  3. CEFEPIME [Concomitant]
  4. MOAB 14.18, CHIMERIC (CH14.18) [Suspect]
     Dosage: 68 MG
     Dates: start: 20100924
  5. BENADRYL [Concomitant]
  6. VANCOMYCIN [Concomitant]
  7. DOPAMINE [Concomitant]
  8. TOBRAMYCIN [Concomitant]
  9. TORADOL [Concomitant]
  10. ISOTRETINOIN [Suspect]
     Dosage: 1680 MG
     Dates: start: 20101010
  11. PHENYLEPHRINE [Concomitant]

REACTIONS (1)
  - HYPOTENSION [None]
